FAERS Safety Report 6431402-X (Version None)
Quarter: 2009Q4

REPORT INFORMATION
  Report Type: 
  Country: None (occurrence: None)
  Receive Date: 20091106
  Receipt Date: 20091028
  Transmission Date: 20100525
  Serious: Yes (Hospitalization, Other)
  Sender: FDA-Public Use
  Company Number: PHHY2009JP47798

PATIENT
  Age: 48 Year
  Sex: Male

DRUGS (3)
  1. CYCLOSPORINE [Suspect]
     Indication: LIVER TRANSPLANT
     Dosage: 1150 MG DAILY
     Route: 048
  2. MYCOPHENOLATE MOFETIL [Concomitant]
     Indication: LIVER TRANSPLANT
     Dosage: 3250 MG
     Route: 048
  3. LAMIVUDINE [Concomitant]
     Indication: LIVER TRANSPLANT
     Dosage: 2000 MG
     Route: 048

REACTIONS (3)
  - BLOOD CREATININE INCREASED [None]
  - IMMUNOSUPPRESSANT DRUG LEVEL INCREASED [None]
  - INTENTIONAL OVERDOSE [None]
